FAERS Safety Report 9380458 (Version 1)
Quarter: 2013Q2

REPORT INFORMATION
  Report Type: Spontaneous
  Country: US (occurrence: None)
  Receive Date: 20130628
  Receipt Date: 20130628
  Transmission Date: 20140414
  Serious: Yes (Other)
  Sender: FDA-Public Use
  Company Number: 2013P1009679

PATIENT
  Age: 29 Year
  Sex: Male

DRUGS (2)
  1. ZOLPIDEM [Suspect]
     Indication: DRUG ABUSE
  2. DULOXETINE [Concomitant]

REACTIONS (10)
  - Incorrect route of drug administration [None]
  - Pain [None]
  - Swelling [None]
  - Feeling hot [None]
  - Thrombophlebitis [None]
  - Confusional state [None]
  - Communication disorder [None]
  - Emotional disorder [None]
  - Drug abuse [None]
  - Ischaemia [None]
